FAERS Safety Report 10654579 (Version 3)
Quarter: 2015Q1

REPORT INFORMATION
  Report Type: Spontaneous
  Country: US (occurrence: US)
  Receive Date: 20141216
  Receipt Date: 20150203
  Transmission Date: 20150720
  Serious: Yes (Disabling)
  Sender: FDA-Public Use
  Company Number: US-009507513-1110USA03607

PATIENT
  Sex: Male
  Weight: 73.16 kg

DRUGS (5)
  1. PROSCAR [Suspect]
     Active Substance: FINASTERIDE
     Indication: ANDROGENETIC ALOPECIA
     Dosage: 5 MG, QD
     Route: 048
     Dates: start: 20080725, end: 201010
  2. PROSCAR [Suspect]
     Active Substance: FINASTERIDE
     Dosage: 1.25 MG DOSE(FREQ NOT SPECIFIED)
     Route: 048
     Dates: start: 200803, end: 20101009
  3. PROPECIA [Suspect]
     Active Substance: FINASTERIDE
     Indication: ANDROGENETIC ALOPECIA
     Dosage: 1 MG, QD
     Route: 048
     Dates: start: 20070219, end: 20080725
  4. PROSCAR [Suspect]
     Active Substance: FINASTERIDE
     Dosage: 4 MG, QD, CUT IN QUARTER, TAKE 1.25 MG DAILY
     Route: 048
     Dates: start: 200806, end: 20101009
  5. FINASTERIDE. [Suspect]
     Active Substance: FINASTERIDE
     Indication: ANDROGENETIC ALOPECIA
     Dosage: 1.25 MG DOSE (FREQ NOT SPECIFIED)
     Route: 048
     Dates: start: 20080802, end: 2008

REACTIONS (26)
  - Hypogonadism male [Unknown]
  - Paranoia [Unknown]
  - Semen volume decreased [Unknown]
  - Feeling abnormal [Unknown]
  - Brain injury [Unknown]
  - Ejaculation disorder [Unknown]
  - Testicular pain [Unknown]
  - Perineal pain [Unknown]
  - Erectile dysfunction [Unknown]
  - Anxiety [Not Recovered/Not Resolved]
  - Cognitive disorder [Unknown]
  - Drug administration error [Unknown]
  - Panic attack [Unknown]
  - Depression [Not Recovered/Not Resolved]
  - Muscle twitching [Unknown]
  - Testicular disorder [Unknown]
  - Penis disorder [Unknown]
  - Insomnia [Unknown]
  - Wrong technique in drug usage process [Unknown]
  - Dysuria [Unknown]
  - Libido decreased [Unknown]
  - Prostatic pain [Unknown]
  - Sexual dysfunction [Not Recovered/Not Resolved]
  - Incorrect dose administered [Unknown]
  - Sexual dysfunction [Unknown]
  - Ejaculation failure [Unknown]

NARRATIVE: CASE EVENT DATE: 200806
